FAERS Safety Report 17689338 (Version 1)
Quarter: 2020Q2

REPORT INFORMATION
  Report Type: Spontaneous
  Country: US (occurrence: US)
  Receive Date: 20200421
  Receipt Date: 20200421
  Transmission Date: 20200714
  Serious: Yes (Other)
  Sender: FDA-Public Use
  Company Number: US-NAPPMUNDI-USA-2020-0151471

PATIENT
  Sex: Female

DRUGS (2)
  1. OXYCONTIN [Suspect]
     Active Substance: OXYCODONE HYDROCHLORIDE
     Indication: PRODUCT USED FOR UNKNOWN INDICATION
     Dosage: 80 MG, TID
     Route: 048
     Dates: start: 2003
  2. OXYCONTIN [Suspect]
     Active Substance: OXYCODONE HYDROCHLORIDE
     Dosage: 60 MG, TID
     Route: 048

REACTIONS (9)
  - Memory impairment [Not Recovered/Not Resolved]
  - Inadequate analgesia [Not Recovered/Not Resolved]
  - Renal surgery [Not Recovered/Not Resolved]
  - Renal procedural complication [Not Recovered/Not Resolved]
  - Nerve injury [Not Recovered/Not Resolved]
  - Hernia [Not Recovered/Not Resolved]
  - Visual impairment [Not Recovered/Not Resolved]
  - Off label use [Not Recovered/Not Resolved]
  - Drug dependence [Not Recovered/Not Resolved]

NARRATIVE: CASE EVENT DATE: 2003
